FAERS Safety Report 15143791 (Version 1)
Quarter: 2018Q3

REPORT INFORMATION
  Report Type: Spontaneous
  Country: GB (occurrence: ES)
  Receive Date: 20180713
  Receipt Date: 20180713
  Transmission Date: 20181010
  Serious: Yes (Other)
  Sender: FDA-Public Use
  Company Number: ES-FRESENIUS KABI-FK201807708

PATIENT
  Age: 79 Year
  Sex: Female

DRUGS (9)
  1. FUROSEMIDE (MANUFACTURER UNKNOWN) [Suspect]
     Active Substance: FUROSEMIDE
     Indication: PRODUCT USED FOR UNKNOWN INDICATION
     Dosage: 10 MG EVERY 12 HOURS ALTERNATING WITH PAUSES EVERY 6 AND 8 HOURS
     Route: 065
     Dates: start: 20170105, end: 20170305
  2. CAPTOPRIL. [Concomitant]
     Active Substance: CAPTOPRIL
     Indication: PRODUCT USED FOR UNKNOWN INDICATION
     Dosage: 50 MG IF NECESSARY
     Route: 065
     Dates: start: 20170204, end: 20170321
  3. PARACETAMOL [Concomitant]
     Active Substance: ACETAMINOPHEN
     Indication: PRODUCT USED FOR UNKNOWN INDICATION
     Dosage: 1 GR EVERY 8 HOURS
     Route: 065
     Dates: start: 20161227, end: 20170329
  4. SALBUTAMOL [Concomitant]
     Active Substance: ALBUTEROL
     Indication: PRODUCT USED FOR UNKNOWN INDICATION
     Dosage: 0,5 ML EVERY 8 HOURS
     Route: 065
     Dates: start: 20170123, end: 20170308
  5. ENALAPRIL [Concomitant]
     Active Substance: ENALAPRIL
     Indication: PRODUCT USED FOR UNKNOWN INDICATION
     Dosage: 20 MG EVERY 24 HOURS WITH MODIFICATION TO 20 MG EVERY 12 HOURS AND 10 MG EVERY 12 HOURS AFTERWARDS
     Route: 065
     Dates: start: 20170126, end: 20170721
  6. NIFEDIPINE. [Concomitant]
     Active Substance: NIFEDIPINE
     Indication: PRODUCT USED FOR UNKNOWN INDICATION
     Dosage: 20 MG EVERY 8 HOURS WITH LATER DECREASE EVERY 12 HOURS
     Route: 065
     Dates: start: 20170103, end: 20170316
  7. ENOXAPARIN SODIUM. [Concomitant]
     Active Substance: ENOXAPARIN SODIUM
     Indication: PRODUCT USED FOR UNKNOWN INDICATION
     Dosage: 40 GR EVERY 24 HOURS
     Route: 065
     Dates: start: 20170122, end: 20170306
  8. IPRATROPIUM BROMIDE. [Concomitant]
     Active Substance: IPRATROPIUM BROMIDE
     Indication: PRODUCT USED FOR UNKNOWN INDICATION
     Dosage: 500 MCG EVERY 8 HOURS
     Route: 065
     Dates: start: 20170123, end: 20170308
  9. METAMIZOLE MAGNESIUM [Concomitant]
     Active Substance: METAMIZOLE MAGNESIUM
     Indication: PRODUCT USED FOR UNKNOWN INDICATION
     Dosage: 2 GR EVERY 8 HOURS
     Route: 065
     Dates: start: 20170217, end: 20170321

REACTIONS (2)
  - Hypokalaemia [Recovered/Resolved]
  - Metabolic acidosis [Recovered/Resolved]

NARRATIVE: CASE EVENT DATE: 20170303
